FAERS Safety Report 22329544 (Version 1)
Quarter: 2023Q2

REPORT INFORMATION
  Report Type: Spontaneous
  Country: US (occurrence: US)
  Receive Date: 20230517
  Receipt Date: 20230517
  Transmission Date: 20230722
  Serious: Yes (Other)
  Sender: FDA-Public Use
  Company Number: US-BRISTOL-MYERS SQUIBB COMPANY-2023-068317

PATIENT
  Age: 50 Year
  Sex: Female

DRUGS (4)
  1. NIVOLUMAB [Suspect]
     Active Substance: NIVOLUMAB
     Indication: Metastatic malignant melanoma
  2. IPILIMUMAB [Suspect]
     Active Substance: IPILIMUMAB
     Indication: Metastatic malignant melanoma
  3. ENCORAFENIB [Concomitant]
     Active Substance: ENCORAFENIB
     Indication: Metastatic malignant melanoma
  4. BINIMETINIB [Concomitant]
     Active Substance: BINIMETINIB
     Indication: Metastatic malignant melanoma

REACTIONS (1)
  - Colitis [Recovering/Resolving]
